FAERS Safety Report 7893907-4 (Version None)
Quarter: 2011Q4

REPORT INFORMATION
  Report Type: 
  Country: None (occurrence: None)
  Receive Date: 20111104
  Receipt Date: 20111101
  Transmission Date: 20120403
  Serious: Yes (Other)
  Sender: FDA-Public Use
  Company Number: US-PFIZER INC-2011214179

PATIENT
  Sex: Female
  Weight: 79.365 kg

DRUGS (9)
  1. VITAMIN D [Concomitant]
     Dosage: 1000 UNITS, 1X/DAY
  2. LYRICA [Concomitant]
     Indication: FIBROMYALGIA
  3. VITAMIN TAB [Concomitant]
     Dosage: 2 CAPSULES DAILY
     Route: 048
  4. VENTOLIN [Concomitant]
     Dosage: 2 PUFFS EVERY 4 HOURS AS NEEDED
  5. TOVIAZ [Suspect]
     Indication: POLLAKIURIA
     Dosage: 4 MG, UNK
     Route: 048
  6. LORATADINE [Concomitant]
     Dosage: 10 MG, 1X/DAY
  7. TOVIAZ [Suspect]
     Indication: HYPERTONIC BLADDER
     Dosage: 8 MG, 1X/DAY
     Route: 048
  8. LISINOPRIL AND HYDROCHLOROTHIAZIDE [Concomitant]
     Dosage: 10MG/12.5MG TWICE DAILY
  9. LYRICA [Concomitant]
     Indication: NEUROPATHY PERIPHERAL
     Dosage: 200 MG, 3X/DAY
     Route: 048

REACTIONS (6)
  - URINARY INCONTINENCE [None]
  - RHINITIS ALLERGIC [None]
  - DYSPNOEA [None]
  - NOCTURIA [None]
  - DRUG EFFECT DECREASED [None]
  - RESPIRATORY TRACT CONGESTION [None]
